FAERS Safety Report 14419308 (Version 1)
Quarter: 2018Q1

REPORT INFORMATION
  Report Type: Spontaneous
  Country: GB (occurrence: GB)
  Receive Date: 20180120
  Receipt Date: 20180120
  Transmission Date: 20180509
  Serious: Yes (Hospitalization, Other)
  Sender: FDA-Public Use
  Company Number: None

PATIENT
  Age: 48 Year
  Sex: Female
  Weight: 47 kg

DRUGS (10)
  1. MAGNESIUM CITRATE. [Concomitant]
     Active Substance: MAGNESIUM CITRATE
  2. DULOXETINE. [Suspect]
     Active Substance: DULOXETINE
     Indication: DEPRESSION
     Dosage: ?          QUANTITY:1 CAPSULE(S);?
     Route: 048
  3. DULOXETINE. [Suspect]
     Active Substance: DULOXETINE
     Indication: NEURALGIA
     Dosage: ?          QUANTITY:1 CAPSULE(S);?
     Route: 048
  4. MULTIVITAMIN [Concomitant]
     Active Substance: VITAMINS
  5. PROBIOTIC [Concomitant]
     Active Substance: PROBIOTICS NOS
  6. DULOXETINE. [Suspect]
     Active Substance: DULOXETINE
     Indication: ANXIETY
     Dosage: ?          QUANTITY:1 CAPSULE(S);?
     Route: 048
  7. RIBOFLAVIN [Concomitant]
     Active Substance: RIBOFLAVIN
  8. TURMERIC [Concomitant]
     Active Substance: HERBALS\TURMERIC
  9. VITAMIN D [Concomitant]
     Active Substance: CHOLECALCIFEROL
  10. MILK THISTLE [Concomitant]
     Active Substance: DIETARY SUPPLEMENT\HERBALS\MILK THISTLE

REACTIONS (15)
  - Nausea [None]
  - Cerebral haemorrhage [None]
  - Diarrhoea [None]
  - Mania [None]
  - Confusional state [None]
  - Crying [None]
  - Vomiting projectile [None]
  - Irritability [None]
  - Anger [None]
  - Eye pain [None]
  - Hypersomnia [None]
  - Pruritus [None]
  - Cerebrovascular accident [None]
  - Migraine [None]
  - Asthenia [None]

NARRATIVE: CASE EVENT DATE: 20180106
